FAERS Safety Report 15742900 (Version 1)
Quarter: 2018Q4

REPORT INFORMATION
  Report Type: Spontaneous
  Country: US (occurrence: US)
  Receive Date: 20181220
  Receipt Date: 20181220
  Transmission Date: 20190205
  Serious: No
  Sender: FDA-Public Use
  Company Number: US-LUPIN PHARMACEUTICALS INC.-2018-08761

PATIENT
  Age: 32 Year
  Sex: Female
  Weight: 97.96 kg

DRUGS (2)
  1. AZITHROMYCIN TABLETS [Suspect]
     Active Substance: AZITHROMYCIN ANHYDROUS
     Indication: PRODUCT USED FOR UNKNOWN INDICATION
     Dosage: UNK UNK, QD (2 TABLETS ON DAY 1, FOLLOWED BY ONE TABLET)
     Route: 048
     Dates: start: 20181205, end: 20181206
  2. ATIVAN [Concomitant]
     Active Substance: LORAZEPAM
     Indication: PRODUCT USED FOR UNKNOWN INDICATION
     Dosage: UNK
     Route: 065

REACTIONS (2)
  - Skin exfoliation [Unknown]
  - Oral discomfort [Unknown]

NARRATIVE: CASE EVENT DATE: 20181205
